FAERS Safety Report 20378651 (Version 1)
Quarter: 2022Q1

REPORT INFORMATION
  Report Type: Spontaneous
  Country: US (occurrence: None)
  Receive Date: 20220125
  Receipt Date: 20220125
  Transmission Date: 20220423
  Serious: Yes (Hospitalization)
  Sender: FDA-Public Use
  Company Number: None

PATIENT
  Age: 74 Year
  Sex: Female

DRUGS (1)
  1. COSENTYX [Suspect]
     Active Substance: SECUKINUMAB
     Dosage: OTHER FREQUENCY : N/A;?
     Route: 058
     Dates: start: 202111

REACTIONS (2)
  - Appendicitis perforated [None]
  - Therapy interrupted [None]

NARRATIVE: CASE EVENT DATE: 20220104
